FAERS Safety Report 9879788 (Version 2)
Quarter: 2014Q1

REPORT INFORMATION
  Report Type: Spontaneous
  Country: AU (occurrence: AU)
  Receive Date: 20140206
  Receipt Date: 20140219
  Transmission Date: 20141002
  Serious: Yes (Hospitalization)
  Sender: FDA-Public Use
  Company Number: AU-ABBVIE-14P-008-1198653-00

PATIENT
  Age: 65 Year
  Sex: Female
  Weight: 50 kg

DRUGS (2)
  1. LIPIDIL [Suspect]
     Indication: BLOOD TRIGLYCERIDES INCREASED
     Dosage: ONE OR TWO A DAY
     Dates: start: 20130509, end: 20140102
  2. LIPIDIL [Suspect]
     Indication: BLOOD CHOLESTEROL INCREASED
     Dates: start: 20140103, end: 20140104

REACTIONS (8)
  - Angioedema [Unknown]
  - Hypersensitivity [Unknown]
  - Photosensitivity reaction [Unknown]
  - Photosensitivity reaction [Unknown]
  - Rash pruritic [Recovered/Resolved with Sequelae]
  - Rash erythematous [Recovered/Resolved with Sequelae]
  - Pallor [Recovered/Resolved with Sequelae]
  - Drug ineffective [Unknown]
